FAERS Safety Report 15376464 (Version 5)
Quarter: 2019Q3

REPORT INFORMATION
  Report Type: Spontaneous
  Country: DE (occurrence: DE)
  Receive Date: 20180912
  Receipt Date: 20190821
  Transmission Date: 20191004
  Serious: Yes (Hospitalization)
  Sender: FDA-Public Use
  Company Number: DE-ANIPHARMA-2018-DE-000157

PATIENT
  Sex: Female

DRUGS (5)
  1. DIOVAN [Concomitant]
     Active Substance: VALSARTAN
     Dosage: 1 DF DAILY / 160 MG UNK / 1 DF DAILY / 320 MG DAILY
     Route: 065
     Dates: start: 201906
  2. VALSARTAN HEXAL [Suspect]
     Active Substance: VALSARTAN
     Dosage: 1 DF DAILY / 1 DF HS
     Route: 065
     Dates: start: 2012, end: 2015
  3. VALSARTAN HEXAL COMP [Suspect]
     Active Substance: VALSARTAN
     Dosage: 1 DF DAILY / 1 DF QAM
     Route: 065
     Dates: start: 2012, end: 2015
  4. CO-DIOVAN [Suspect]
     Active Substance: HYDROCHLOROTHIAZIDE\VALSARTAN
     Dosage: DF DAILY / 1 DF QAM
     Dates: start: 20180718
  5. ATACAND [Suspect]
     Active Substance: CANDESARTAN CILEXETIL
     Indication: PRODUCT USED FOR UNKNOWN INDICATION
     Dosage: UNK
     Route: 048
     Dates: start: 2015, end: 2015

REACTIONS (8)
  - Dysuria [Not Recovered/Not Resolved]
  - Genital pain [Recovered/Resolved]
  - Nasal dryness [Unknown]
  - Pain [Recovered/Resolved]
  - Stomatitis [Unknown]
  - Product outer packaging issue [Unknown]
  - Cystitis [Recovered/Resolved]
  - Cystitis interstitial [Recovered/Resolved]

NARRATIVE: CASE EVENT DATE: 2014
